FAERS Safety Report 8254307-0 (Version None)
Quarter: 2012Q2

REPORT INFORMATION
  Report Type: 
  Country: None (occurrence: None)
  Receive Date: 20120402
  Receipt Date: 20120323
  Transmission Date: 20120825
  Serious: No
  Sender: FDA-Public Use
  Company Number: US-AMGEN-USASP2012019032

PATIENT
  Age: 60 Year
  Sex: Male

DRUGS (4)
  1. EFFEXOR [Concomitant]
     Dosage: UNK
  2. TRAMADOL HCL [Concomitant]
     Dosage: UNK
  3. SEROQUEL [Concomitant]
     Dosage: UNK
  4. ENBREL [Suspect]
     Indication: PSORIATIC ARTHROPATHY
     Dosage: 50 MG, QWK
     Dates: start: 20120201

REACTIONS (1)
  - CONSTIPATION [None]
